FAERS Safety Report 18233419 (Version 44)
Quarter: 2024Q1

REPORT INFORMATION
  Report Type: Spontaneous
  Country: CA (occurrence: CA)
  Receive Date: 20200904
  Receipt Date: 20240219
  Transmission Date: 20240410
  Serious: Yes (Hospitalization, Other)
  Sender: FDA-Public Use
  Company Number: CA-BAUSCH-BL-2020-025040

PATIENT
  Age: 54 Year
  Sex: Female

DRUGS (210)
  1. BUDESONIDE [Suspect]
     Active Substance: BUDESONIDE
     Indication: Product used for unknown indication
     Dosage: NOT SPECIFIED
     Route: 065
  2. BUDESONIDE [Suspect]
     Active Substance: BUDESONIDE
     Dosage: 3 EVERY 1 DAYS
     Route: 065
  3. BUDESONIDE [Suspect]
     Active Substance: BUDESONIDE
     Indication: Product used for unknown indication
     Route: 065
  4. BUDESONIDE [Suspect]
     Active Substance: BUDESONIDE
     Route: 065
  5. BUDESONIDE [Suspect]
     Active Substance: BUDESONIDE
     Route: 065
  6. ALBUTEROL [Suspect]
     Active Substance: ALBUTEROL
     Indication: Asthma
     Dosage: NOT SPECIFIED
     Route: 065
  7. ALBUTEROL [Suspect]
     Active Substance: ALBUTEROL
     Dosage: METERED DOSE INHALER DEVICE (SALBUTAMOL SULPHATE HFA)
     Route: 065
  8. ALBUTEROL [Suspect]
     Active Substance: ALBUTEROL
     Dosage: SALBUTAMOL SULFATE
     Route: 065
     Dates: start: 20000101
  9. ALBUTEROL [Suspect]
     Active Substance: ALBUTEROL
     Dosage: SALBUTAMOL SULFATE
     Route: 065
  10. BUPROPION [Suspect]
     Active Substance: BUPROPION
     Indication: Product used for unknown indication
     Route: 065
  11. BUPROPION [Suspect]
     Active Substance: BUPROPION
     Dosage: BUPROPION HYDROCHLORIDE
     Route: 065
  12. ACYCLOVIR [Suspect]
     Active Substance: ACYCLOVIR
     Indication: Product used for unknown indication
     Route: 065
  13. ACYCLOVIR [Suspect]
     Active Substance: ACYCLOVIR
     Dosage: INTRACARDIAC
     Route: 016
  14. ACYCLOVIR [Suspect]
     Active Substance: ACYCLOVIR
     Dosage: ACYCLOVIR SODIUM
     Route: 065
  15. BUPROPION HYDROBROMIDE [Suspect]
     Active Substance: BUPROPION HYDROBROMIDE
     Indication: Product used for unknown indication
     Route: 065
  16. BUPROPION HYDROBROMIDE [Suspect]
     Active Substance: BUPROPION HYDROBROMIDE
     Route: 065
  17. TRAMADOL [Suspect]
     Active Substance: TRAMADOL\TRAMADOL HYDROCHLORIDE
     Indication: Product used for unknown indication
     Route: 065
  18. TRAMADOL [Suspect]
     Active Substance: TRAMADOL\TRAMADOL HYDROCHLORIDE
     Dosage: TRAMADOL HYDROCHLORIDE
     Route: 065
  19. TRAMADOL [Suspect]
     Active Substance: TRAMADOL\TRAMADOL HYDROCHLORIDE
     Dosage: TRAMADOL HYDROCHLORIDE
     Route: 065
  20. TRAMADOL [Suspect]
     Active Substance: TRAMADOL\TRAMADOL HYDROCHLORIDE
     Dosage: TRAMADOL HYDROCHLORIDE CYCLICAL
     Route: 065
  21. TRAMADOL [Suspect]
     Active Substance: TRAMADOL\TRAMADOL HYDROCHLORIDE
     Dosage: TRAMADOL HYDROCHLORIDE
     Route: 065
  22. TRAMADOL [Suspect]
     Active Substance: TRAMADOL\TRAMADOL HYDROCHLORIDE
     Dosage: TRAMADOL HYDROCHLORIDE
     Route: 065
  23. TRAMADOL [Suspect]
     Active Substance: TRAMADOL\TRAMADOL HYDROCHLORIDE
     Route: 065
  24. TRAMADOL [Suspect]
     Active Substance: TRAMADOL\TRAMADOL HYDROCHLORIDE
     Route: 065
  25. BUDESONIDE [Suspect]
     Active Substance: BUDESONIDE
     Indication: Product used for unknown indication
     Dosage: NOT PROVIDED, INTRANASAL
     Route: 045
  26. BUDESONIDE [Suspect]
     Active Substance: BUDESONIDE
     Dosage: INTRANASAL
     Route: 045
  27. BUDESONIDE [Suspect]
     Active Substance: BUDESONIDE
     Dosage: INTRANASAL
     Route: 045
  28. BUDESONIDE [Suspect]
     Active Substance: BUDESONIDE
     Dosage: INTRANASAL
     Route: 045
  29. SPIRONOLACTONE [Suspect]
     Active Substance: SPIRONOLACTONE
     Indication: Product used for unknown indication
     Route: 065
  30. SPIRONOLACTONE [Suspect]
     Active Substance: SPIRONOLACTONE
     Route: 065
  31. SPIRONOLACTONE [Suspect]
     Active Substance: SPIRONOLACTONE
     Route: 048
  32. SPIRONOLACTONE [Suspect]
     Active Substance: SPIRONOLACTONE
     Route: 065
  33. LIOTHYRONINE SODIUM [Suspect]
     Active Substance: LIOTHYRONINE SODIUM
     Indication: Product used for unknown indication
     Route: 065
  34. LIOTHYRONINE SODIUM [Suspect]
     Active Substance: LIOTHYRONINE SODIUM
     Route: 065
  35. VITAMIN B12 [Suspect]
     Active Substance: CYANOCOBALAMIN
     Indication: Product used for unknown indication
     Route: 065
  36. BUDESONIDE\FORMOTEROL FUMARATE [Suspect]
     Active Substance: BUDESONIDE\FORMOTEROL FUMARATE
     Indication: Product used for unknown indication
     Route: 065
  37. BUDESONIDE\FORMOTEROL FUMARATE [Suspect]
     Active Substance: BUDESONIDE\FORMOTEROL FUMARATE
     Route: 065
  38. BUDESONIDE\FORMOTEROL FUMARATE [Suspect]
     Active Substance: BUDESONIDE\FORMOTEROL FUMARATE
     Route: 065
  39. BUDESONIDE\FORMOTEROL FUMARATE [Suspect]
     Active Substance: BUDESONIDE\FORMOTEROL FUMARATE
     Route: 065
  40. BUDESONIDE\FORMOTEROL FUMARATE [Suspect]
     Active Substance: BUDESONIDE\FORMOTEROL FUMARATE
     Route: 065
  41. BUDESONIDE\FORMOTEROL FUMARATE [Suspect]
     Active Substance: BUDESONIDE\FORMOTEROL FUMARATE
     Route: 065
  42. BUDESONIDE\FORMOTEROL FUMARATE [Suspect]
     Active Substance: BUDESONIDE\FORMOTEROL FUMARATE
     Dosage: INTRA-NASAL
     Route: 045
  43. BUDESONIDE\FORMOTEROL FUMARATE [Suspect]
     Active Substance: BUDESONIDE\FORMOTEROL FUMARATE
     Route: 065
  44. BUDESONIDE\FORMOTEROL FUMARATE [Suspect]
     Active Substance: BUDESONIDE\FORMOTEROL FUMARATE
     Route: 065
  45. BUDESONIDE\FORMOTEROL FUMARATE [Suspect]
     Active Substance: BUDESONIDE\FORMOTEROL FUMARATE
     Route: 065
  46. BUDESONIDE\FORMOTEROL FUMARATE [Suspect]
     Active Substance: BUDESONIDE\FORMOTEROL FUMARATE
     Route: 065
  47. BUDESONIDE\FORMOTEROL FUMARATE [Suspect]
     Active Substance: BUDESONIDE\FORMOTEROL FUMARATE
     Dosage: INTRA-NASAL
     Route: 045
  48. BUDESONIDE\FORMOTEROL FUMARATE [Suspect]
     Active Substance: BUDESONIDE\FORMOTEROL FUMARATE
     Dosage: BUDESONIDE;FORMOTEROL
     Route: 065
  49. MOMETASONE [Suspect]
     Active Substance: MOMETASONE
     Indication: Product used for unknown indication
     Dosage: 2 SPRAYS IN EACH NOSTRIL
     Route: 045
     Dates: start: 2018
  50. MOMETASONE [Suspect]
     Active Substance: MOMETASONE
     Route: 065
  51. MOMETASONE [Suspect]
     Active Substance: MOMETASONE
     Dosage: INTRA-NASAL
     Route: 045
  52. MOMETASONE [Suspect]
     Active Substance: MOMETASONE
     Route: 065
  53. MOMETASONE [Suspect]
     Active Substance: MOMETASONE
     Dosage: INTRA-NASAL
     Route: 045
  54. MOMETASONE [Suspect]
     Active Substance: MOMETASONE
     Dosage: SPRAY, METERED DOSE
     Route: 045
  55. MOMETASONE [Suspect]
     Active Substance: MOMETASONE
     Dosage: INTRA-NASAL
     Route: 045
  56. MOMETASONE [Suspect]
     Active Substance: MOMETASONE
     Dosage: INTRA-NASAL
     Route: 045
  57. MOMETASONE [Suspect]
     Active Substance: MOMETASONE
     Route: 065
  58. MOMETASONE [Suspect]
     Active Substance: MOMETASONE
     Dosage: SPRAY, METERED DOSE
     Route: 065
  59. MOMETASONE [Suspect]
     Active Substance: MOMETASONE
     Dosage: MOMETASONE FUROATE
     Route: 065
  60. MOMETASONE [Suspect]
     Active Substance: MOMETASONE
     Dosage: MOMETASONE FUROATE
     Route: 065
  61. MOMETASONE [Suspect]
     Active Substance: MOMETASONE
     Dosage: MOMETASONE FUROATE
     Route: 065
  62. MOMETASONE [Suspect]
     Active Substance: MOMETASONE
     Dosage: INTRA-NASAL
     Route: 045
  63. MOMETASONE [Suspect]
     Active Substance: MOMETASONE
     Dosage: INTRA-NASAL
     Route: 045
  64. MOMETASONE [Suspect]
     Active Substance: MOMETASONE
     Route: 065
  65. MOMETASONE [Suspect]
     Active Substance: MOMETASONE
     Route: 065
  66. PREDNISONE [Suspect]
     Active Substance: PREDNISONE
     Indication: Product used for unknown indication
     Dosage: WHEN NEEDED
     Route: 065
  67. PREDNISONE [Suspect]
     Active Substance: PREDNISONE
     Route: 065
  68. SYMBICORT [Suspect]
     Active Substance: BUDESONIDE\FORMOTEROL FUMARATE DIHYDRATE
     Indication: Product used for unknown indication
     Dosage: 1 PUFF(S) 3 IN 1 DAY, 200 MCG/6 MCG
     Route: 055
     Dates: start: 20100101
  69. SYMBICORT [Suspect]
     Active Substance: BUDESONIDE\FORMOTEROL FUMARATE DIHYDRATE
     Dosage: SYMBICORT TURBUHALER
     Route: 065
  70. SYMBICORT [Suspect]
     Active Substance: BUDESONIDE\FORMOTEROL FUMARATE DIHYDRATE
     Dosage: SYMBICORT TURBUHALER
     Route: 065
  71. APIXABAN [Suspect]
     Active Substance: APIXABAN
     Indication: Product used for unknown indication
     Route: 065
  72. APIXABAN [Suspect]
     Active Substance: APIXABAN
     Dosage: INTRACARDIAC
     Route: 016
  73. APIXABAN [Suspect]
     Active Substance: APIXABAN
     Route: 065
  74. APIXABAN [Suspect]
     Active Substance: APIXABAN
     Dosage: INTRACARDIAC
     Route: 016
  75. METOPROLOL [Suspect]
     Active Substance: METOPROLOL
     Indication: Product used for unknown indication
     Dosage: NOT SPECIFIED
     Route: 065
  76. METOPROLOL [Suspect]
     Active Substance: METOPROLOL
     Dosage: METOPROLOL FUMARATE
     Route: 065
  77. METOPROLOL [Suspect]
     Active Substance: METOPROLOL
     Dosage: METOPROLOL TARTRATE
     Route: 065
  78. PERINDOPRIL [Suspect]
     Active Substance: PERINDOPRIL
     Indication: Product used for unknown indication
     Route: 065
  79. PERINDOPRIL [Suspect]
     Active Substance: PERINDOPRIL
     Route: 065
  80. PERINDOPRIL [Suspect]
     Active Substance: PERINDOPRIL
     Dosage: PERINDOPRIL ERBUMINE
     Route: 065
  81. PERINDOPRIL [Suspect]
     Active Substance: PERINDOPRIL
     Dosage: PERINDOPRIL ERBUMINE
     Route: 065
  82. PERINDOPRIL [Suspect]
     Active Substance: PERINDOPRIL
     Dosage: PERINDOPRIL ARGININE
     Route: 065
  83. PERINDOPRIL [Suspect]
     Active Substance: PERINDOPRIL
     Dosage: PERINDOPRIL ARGININE
     Route: 065
  84. PERINDOPRIL [Suspect]
     Active Substance: PERINDOPRIL
     Route: 065
  85. PERINDOPRIL [Suspect]
     Active Substance: PERINDOPRIL
     Dosage: INTRACARDIAC
     Route: 016
  86. ESOMEPRAZOLE [Suspect]
     Active Substance: ESOMEPRAZOLE
     Indication: Product used for unknown indication
     Route: 065
  87. ESOMEPRAZOLE [Suspect]
     Active Substance: ESOMEPRAZOLE
     Dosage: ESOMEPRAZOLE MAGNESIUM TRIHYDRATE
     Route: 065
  88. ESOMEPRAZOLE [Suspect]
     Active Substance: ESOMEPRAZOLE
     Dosage: ESOMEPRAZOLE MAGNESIUM TRIHYDRATE
     Route: 048
  89. TRAZODONE [Suspect]
     Active Substance: TRAZODONE HYDROCHLORIDE
     Indication: Product used for unknown indication
     Route: 065
  90. TRAZODONE [Suspect]
     Active Substance: TRAZODONE HYDROCHLORIDE
     Route: 065
  91. TRAZODONE [Suspect]
     Active Substance: TRAZODONE HYDROCHLORIDE
     Dosage: TRAZODONE HYDROCHLORIDE
     Route: 065
  92. CLONAZEPAM [Suspect]
     Active Substance: CLONAZEPAM
     Indication: Product used for unknown indication
     Route: 065
  93. CLONAZEPAM [Suspect]
     Active Substance: CLONAZEPAM
     Route: 048
  94. NASONEX [Suspect]
     Active Substance: MOMETASONE FUROATE
     Indication: Product used for unknown indication
     Dosage: NASAL SPRAY, METERED DOSE
     Route: 065
  95. NASONEX [Suspect]
     Active Substance: MOMETASONE FUROATE
     Route: 065
  96. NASONEX [Suspect]
     Active Substance: MOMETASONE FUROATE
     Dosage: SPRAY, METERED DOSE
     Route: 065
  97. SODIUM BICARBONATE\SODIUM CHLORIDE [Suspect]
     Active Substance: SODIUM BICARBONATE\SODIUM CHLORIDE
     Indication: Product used for unknown indication
     Route: 065
  98. SODIUM BICARBONATE\SODIUM CHLORIDE [Suspect]
     Active Substance: SODIUM BICARBONATE\SODIUM CHLORIDE
     Route: 065
  99. SODIUM BICARBONATE\SODIUM CHLORIDE [Suspect]
     Active Substance: SODIUM BICARBONATE\SODIUM CHLORIDE
     Route: 065
  100. SODIUM BICARBONATE\SODIUM CHLORIDE [Suspect]
     Active Substance: SODIUM BICARBONATE\SODIUM CHLORIDE
     Route: 065
  101. SODIUM BICARBONATE\SODIUM CHLORIDE [Suspect]
     Active Substance: SODIUM BICARBONATE\SODIUM CHLORIDE
     Route: 065
  102. ACYCLOVIR [Suspect]
     Active Substance: ACYCLOVIR
     Indication: Product used for unknown indication
     Route: 065
  103. HYALURONATE SODIUM [Suspect]
     Active Substance: HYALURONATE SODIUM
     Indication: Product used for unknown indication
     Route: 065
  104. TRAMADOL HYDROCHLORIDE [Suspect]
     Active Substance: TRAMADOL HYDROCHLORIDE
     Indication: Product used for unknown indication
     Route: 065
  105. TRAMADOL HYDROCHLORIDE [Suspect]
     Active Substance: TRAMADOL HYDROCHLORIDE
     Route: 065
  106. CYANOCOBALAMIN [Suspect]
     Active Substance: CYANOCOBALAMIN
     Indication: Product used for unknown indication
     Route: 065
  107. CYANOCOBALAMIN [Suspect]
     Active Substance: CYANOCOBALAMIN
     Route: 065
  108. CYANOCOBALAMIN [Suspect]
     Active Substance: CYANOCOBALAMIN
     Route: 065
  109. CYANOCOBALAMIN [Suspect]
     Active Substance: CYANOCOBALAMIN
     Route: 065
  110. ERGOCALCIFEROL [Suspect]
     Active Substance: ERGOCALCIFEROL
     Indication: Product used for unknown indication
     Route: 065
  111. ERGOCALCIFEROL [Suspect]
     Active Substance: ERGOCALCIFEROL
     Route: 065
  112. EUFLEXXA [Suspect]
     Active Substance: HYALURONATE SODIUM
     Indication: Product used for unknown indication
     Route: 065
  113. SODIUM CHLORIDE [Suspect]
     Active Substance: SODIUM CHLORIDE
     Indication: Product used for unknown indication
     Route: 065
  114. SODIUM CHLORIDE [Suspect]
     Active Substance: SODIUM CHLORIDE
     Route: 065
  115. SODIUM CHLORIDE [Suspect]
     Active Substance: SODIUM CHLORIDE
     Dosage: NOT SPECIFIED
     Route: 065
  116. ULTRAM [Suspect]
     Active Substance: TRAMADOL HYDROCHLORIDE
     Indication: Product used for unknown indication
     Route: 065
  117. ULTRAM [Suspect]
     Active Substance: TRAMADOL HYDROCHLORIDE
     Route: 065
  118. ULTRAM [Suspect]
     Active Substance: TRAMADOL HYDROCHLORIDE
     Route: 065
  119. BUDESONIDE\FORMOTEROL FUMARATE [Suspect]
     Active Substance: BUDESONIDE\FORMOTEROL FUMARATE
     Indication: Product used for unknown indication
     Route: 065
  120. VITAMIN C [Suspect]
     Active Substance: ASCORBIC ACID
     Indication: Product used for unknown indication
     Route: 065
  121. VITAMIN C [Suspect]
     Active Substance: ASCORBIC ACID
     Route: 065
  122. VITAMIN C [Suspect]
     Active Substance: ASCORBIC ACID
     Route: 065
  123. VITAMIN C [Suspect]
     Active Substance: ASCORBIC ACID
     Route: 065
  124. VITAMIN C [Suspect]
     Active Substance: ASCORBIC ACID
     Route: 065
  125. VITAMIN C [Suspect]
     Active Substance: ASCORBIC ACID
     Dosage: VITAMINE C
     Route: 065
  126. VITAMIN C [Suspect]
     Active Substance: ASCORBIC ACID
     Route: 065
  127. DIETARY SUPPLEMENT [Suspect]
     Active Substance: DIETARY SUPPLEMENT
     Indication: Product used for unknown indication
     Route: 065
  128. DIETARY SUPPLEMENT [Suspect]
     Active Substance: DIETARY SUPPLEMENT
     Route: 048
  129. FORMOTEROL [Suspect]
     Active Substance: FORMOTEROL
     Indication: Product used for unknown indication
     Route: 065
  130. FORMOTEROL [Suspect]
     Active Substance: FORMOTEROL
     Route: 065
  131. FORMOTEROL [Suspect]
     Active Substance: FORMOTEROL
     Route: 065
  132. FORMOTEROL [Suspect]
     Active Substance: FORMOTEROL
     Dosage: FORMOTEROL FUMARATE
     Route: 065
  133. FORMOTEROL [Suspect]
     Active Substance: FORMOTEROL
     Dosage: FORMOTEROL FUMARATE
     Route: 065
  134. VITAMIN D3 [Suspect]
     Active Substance: CHOLECALCIFEROL
     Indication: Product used for unknown indication
     Route: 065
  135. CYANOCOBALAMIN\FOLIC ACID [Suspect]
     Active Substance: CYANOCOBALAMIN\FOLIC ACID
     Indication: Product used for unknown indication
     Route: 065
  136. CYANOCOBALAMIN\FOLIC ACID [Suspect]
     Active Substance: CYANOCOBALAMIN\FOLIC ACID
     Dosage: LOZENGE
     Route: 065
  137. ELIQUIS [Suspect]
     Active Substance: APIXABAN
     Indication: Product used for unknown indication
     Route: 065
  138. LEVOTHYROXINE [Suspect]
     Active Substance: LEVOTHYROXINE\LEVOTHYROXINE SODIUM
     Indication: Product used for unknown indication
     Route: 065
  139. LEVOTHYROXINE [Suspect]
     Active Substance: LEVOTHYROXINE\LEVOTHYROXINE SODIUM
     Dosage: LEVOTHYROXINE SODIUM
     Route: 065
  140. LEVOTHYROXINE [Suspect]
     Active Substance: LEVOTHYROXINE\LEVOTHYROXINE SODIUM
     Dosage: LEVOTHYROXINE SODIUM
     Route: 048
  141. LEVOTHYROXINE [Suspect]
     Active Substance: LEVOTHYROXINE\LEVOTHYROXINE SODIUM
     Dosage: LEVOTHYROXINE SODIUM
     Route: 065
  142. SODIUM CHLORIDE [Suspect]
     Active Substance: SODIUM CHLORIDE
     Indication: Product used for unknown indication
     Dosage: POWDER FOR SOLUTION NASAL
     Route: 045
  143. MONTELUKAST [Suspect]
     Active Substance: MONTELUKAST SODIUM
     Indication: Product used for unknown indication
     Route: 065
  144. MONTELUKAST [Suspect]
     Active Substance: MONTELUKAST SODIUM
     Dosage: MONTELUKAST SODIUM
     Route: 065
  145. MONTELUKAST [Suspect]
     Active Substance: MONTELUKAST SODIUM
     Dosage: MONTELUKAST SODIUM, INTRACARDIAC
     Route: 016
  146. HYALURONATE SODIUM [Suspect]
     Active Substance: HYALURONATE SODIUM
     Indication: Product used for unknown indication
     Route: 065
  147. HYALURONATE SODIUM [Suspect]
     Active Substance: HYALURONATE SODIUM
     Route: 048
  148. VITAMIN D NOS [Suspect]
     Active Substance: VITAMIN D NOS
     Indication: Product used for unknown indication
     Route: 065
  149. VITAMIN D NOS [Suspect]
     Active Substance: VITAMIN D NOS
     Route: 065
  150. DIETARY SUPPLEMENT\HERBALS [Suspect]
     Active Substance: DIETARY SUPPLEMENT\HERBALS
     Indication: Product used for unknown indication
     Route: 065
  151. DIETARY SUPPLEMENT\HERBALS [Suspect]
     Active Substance: DIETARY SUPPLEMENT\HERBALS
     Route: 065
  152. DIETARY SUPPLEMENT\HERBALS [Suspect]
     Active Substance: DIETARY SUPPLEMENT\HERBALS
     Dosage: GLOBULES ORAL
     Route: 065
  153. DIETARY SUPPLEMENT\HERBALS [Suspect]
     Active Substance: DIETARY SUPPLEMENT\HERBALS
     Route: 065
  154. DIETARY SUPPLEMENT\HERBALS [Suspect]
     Active Substance: DIETARY SUPPLEMENT\HERBALS
     Route: 065
  155. DIETARY SUPPLEMENT\HERBALS [Suspect]
     Active Substance: DIETARY SUPPLEMENT\HERBALS
     Route: 048
  156. DIETARY SUPPLEMENT [Suspect]
     Active Substance: DIETARY SUPPLEMENT
     Indication: Product used for unknown indication
     Route: 065
  157. DIETARY SUPPLEMENT [Suspect]
     Active Substance: DIETARY SUPPLEMENT
     Route: 048
  158. SODIUM BICARBONATE [Suspect]
     Active Substance: SODIUM BICARBONATE
     Indication: Product used for unknown indication
     Route: 065
  159. COBAMAMIDE [Suspect]
     Active Substance: COBAMAMIDE
     Indication: Product used for unknown indication
     Route: 065
  160. SEA WATER [Suspect]
     Active Substance: SEA WATER
     Indication: Product used for unknown indication
     Route: 065
  161. ALBUTEROL [Suspect]
     Active Substance: ALBUTEROL
     Indication: Product used for unknown indication
     Route: 065
  162. ALBUTEROL [Suspect]
     Active Substance: ALBUTEROL
     Dosage: INTRACARDIAC
     Route: 016
  163. POLYETHYLENE GLYCOL\PROPYLENE GLYCOL [Suspect]
     Active Substance: POLYETHYLENE GLYCOL\PROPYLENE GLYCOL
     Indication: Product used for unknown indication
     Route: 065
  164. ACETAMINOPHEN\TRAMADOL [Suspect]
     Active Substance: ACETAMINOPHEN\TRAMADOL
     Indication: Product used for unknown indication
     Dosage: APO-TRAMADOL/ACET
     Route: 065
  165. CHOLECALCIFEROL [Suspect]
     Active Substance: CHOLECALCIFEROL
     Indication: Product used for unknown indication
     Route: 065
  166. LIOTHYRONINE SODIUM [Suspect]
     Active Substance: LIOTHYRONINE SODIUM
     Indication: Product used for unknown indication
     Route: 065
  167. LIOTHYRONINE SODIUM [Suspect]
     Active Substance: LIOTHYRONINE SODIUM
     Route: 048
  168. ACYCLOVIR [Concomitant]
     Active Substance: ACYCLOVIR
     Indication: Product used for unknown indication
  169. ACYCLOVIR [Concomitant]
     Active Substance: ACYCLOVIR
     Route: 065
  170. ACYCLOVIR [Concomitant]
     Active Substance: ACYCLOVIR
     Dosage: INTRACARDIAC
     Route: 016
  171. BUDESONIDE\FORMOTEROL FUMARATE [Concomitant]
     Active Substance: BUDESONIDE\FORMOTEROL FUMARATE
     Indication: Product used for unknown indication
     Dosage: BUDESONIDE;FORMOTEROL
  172. BUDESONIDE\FORMOTEROL FUMARATE [Concomitant]
     Active Substance: BUDESONIDE\FORMOTEROL FUMARATE
  173. BUDESONIDE\FORMOTEROL FUMARATE [Concomitant]
     Active Substance: BUDESONIDE\FORMOTEROL FUMARATE
  174. BUDESONIDE\FORMOTEROL FUMARATE [Concomitant]
     Active Substance: BUDESONIDE\FORMOTEROL FUMARATE
     Dosage: INTRA-NASAL
     Route: 045
  175. BUDESONIDE\FORMOTEROL FUMARATE [Concomitant]
     Active Substance: BUDESONIDE\FORMOTEROL FUMARATE
  176. BUPROPION HYDROCHLORIDE [Concomitant]
     Active Substance: BUPROPION HYDROCHLORIDE
     Indication: Product used for unknown indication
     Route: 065
  177. CYANOCOBALAMIN [Concomitant]
     Active Substance: CYANOCOBALAMIN
     Indication: Product used for unknown indication
     Route: 065
  178. CYANOCOBALAMIN [Concomitant]
     Active Substance: CYANOCOBALAMIN
     Dosage: NOT SPECIFIED
     Route: 065
  179. FORMOTEROL [Concomitant]
     Active Substance: FORMOTEROL
     Indication: Product used for unknown indication
  180. FORMOTEROL [Concomitant]
     Active Substance: FORMOTEROL
     Dosage: UNKNOWN
  181. LEVOTHYROXINE SODIUM [Concomitant]
     Active Substance: LEVOTHYROXINE SODIUM
     Indication: Product used for unknown indication
     Route: 065
  182. LEVOTHYROXINE SODIUM [Concomitant]
     Active Substance: LEVOTHYROXINE SODIUM
     Route: 048
  183. METOPROLOL [Concomitant]
     Active Substance: METOPROLOL
     Indication: Product used for unknown indication
     Dosage: NOT SPECIFIED
     Route: 065
  184. METOPROLOL [Concomitant]
     Active Substance: METOPROLOL
  185. MOMETASONE [Concomitant]
     Active Substance: MOMETASONE
     Indication: Product used for unknown indication
     Route: 065
  186. MOMETASONE [Concomitant]
     Active Substance: MOMETASONE
     Route: 045
  187. MOMETASONE [Concomitant]
     Active Substance: MOMETASONE
     Route: 045
  188. MOMETASONE [Concomitant]
     Active Substance: MOMETASONE
     Route: 045
  189. MOMETASONE [Concomitant]
     Active Substance: MOMETASONE
     Dosage: SPRAY, METERED DOSE
     Route: 045
  190. MONTELUKAST SODIUM [Concomitant]
     Active Substance: MONTELUKAST SODIUM
     Indication: Product used for unknown indication
     Route: 065
  191. NASONEX [Concomitant]
     Active Substance: MOMETASONE FUROATE
     Indication: Product used for unknown indication
     Dosage: SPRAY, METERED DOSE
  192. PERINDOPRIL [Concomitant]
     Active Substance: PERINDOPRIL
     Indication: Product used for unknown indication
     Route: 065
  193. PERINDOPRIL [Concomitant]
     Active Substance: PERINDOPRIL
     Route: 016
  194. PREDNISONE [Concomitant]
     Active Substance: PREDNISONE
     Indication: Product used for unknown indication
     Route: 065
  195. SODIUM BICARBONATE [Concomitant]
     Active Substance: SODIUM BICARBONATE
     Indication: Product used for unknown indication
     Route: 065
  196. SODIUM BICARBONATE\SODIUM CHLORIDE [Concomitant]
     Active Substance: SODIUM BICARBONATE\SODIUM CHLORIDE
     Indication: Product used for unknown indication
     Route: 065
  197. SODIUM BICARBONATE\SODIUM CHLORIDE [Concomitant]
     Active Substance: SODIUM BICARBONATE\SODIUM CHLORIDE
     Route: 065
  198. SODIUM BICARBONATE\SODIUM CHLORIDE [Concomitant]
     Active Substance: SODIUM BICARBONATE\SODIUM CHLORIDE
     Route: 065
  199. SODIUM BICARBONATE\SODIUM CHLORIDE [Concomitant]
     Active Substance: SODIUM BICARBONATE\SODIUM CHLORIDE
     Route: 065
  200. SPIRONOLACTONE [Concomitant]
     Active Substance: SPIRONOLACTONE
     Indication: Product used for unknown indication
     Route: 065
  201. SPIRONOLACTONE [Concomitant]
     Active Substance: SPIRONOLACTONE
     Route: 048
  202. SPIRONOLACTONE [Concomitant]
     Active Substance: SPIRONOLACTONE
     Route: 065
  203. TRAMADOL HYDROCHLORIDE [Concomitant]
     Active Substance: TRAMADOL HYDROCHLORIDE
     Indication: Product used for unknown indication
     Route: 065
  204. TRAZODONE [Concomitant]
     Active Substance: TRAZODONE HYDROCHLORIDE
     Indication: Product used for unknown indication
     Route: 065
  205. TRAZODONE [Concomitant]
     Active Substance: TRAZODONE HYDROCHLORIDE
     Dosage: TRAZODONE HYDROCHLORIDE
     Route: 065
  206. ULTRAM [Concomitant]
     Active Substance: TRAMADOL HYDROCHLORIDE
     Indication: Product used for unknown indication
     Route: 065
  207. ULTRAM [Concomitant]
     Active Substance: TRAMADOL HYDROCHLORIDE
     Route: 065
  208. ULTRAM [Concomitant]
     Active Substance: TRAMADOL HYDROCHLORIDE
     Route: 065
  209. ERGOCALCIFEROL [Concomitant]
     Active Substance: ERGOCALCIFEROL
     Indication: Product used for unknown indication
     Route: 065
  210. VENTOLIN [Concomitant]
     Active Substance: ALBUTEROL SULFATE
     Indication: Product used for unknown indication
     Route: 065

REACTIONS (36)
  - Hospitalisation [Recovered/Resolved]
  - Nephrectomy [Recovered/Resolved]
  - Asthma [Recovered/Resolved]
  - Blood test abnormal [Recovered/Resolved]
  - Full blood count abnormal [Recovered/Resolved]
  - Adverse event [Recovered/Resolved]
  - Renal disorder [Recovered/Resolved]
  - Asthma [Recovered/Resolved]
  - Hypothyroidism [Recovered/Resolved]
  - Ejection fraction [Recovered/Resolved]
  - Loss of personal independence in daily activities [Recovered/Resolved]
  - Dyspnoea [Recovered/Resolved]
  - Fibromyalgia [Recovered/Resolved]
  - Polycystic ovarian syndrome [Recovered/Resolved]
  - Gastrooesophageal reflux disease [Recovered/Resolved]
  - Carpal tunnel syndrome [Recovered/Resolved]
  - Cardiac disorder [Recovered/Resolved]
  - Obstructive sleep apnoea syndrome [Recovered/Resolved]
  - Sleep disorder due to a general medical condition [Recovered/Resolved]
  - Sleep apnoea syndrome [Recovered/Resolved]
  - Sensitisation [Recovered/Resolved]
  - Ejection fraction abnormal [Recovered/Resolved]
  - Polycystic ovaries [Recovered/Resolved]
  - Ejection fraction [Recovered/Resolved]
  - Burning sensation [Recovered/Resolved]
  - Nephropathy [Recovered/Resolved]
  - Sleep disorder due to general medical condition, insomnia type [Recovered/Resolved]
  - Loss of personal independence in daily activities [Recovered/Resolved]
  - Dyspnoea [Recovered/Resolved]
  - Rhinitis allergic [Recovered/Resolved]
  - Headache [Recovered/Resolved]
  - Hypertension [Recovered/Resolved]
  - Wheezing [Recovered/Resolved]
  - Rhinitis allergic [Recovered/Resolved]
  - Therapeutic product effect incomplete [Recovered/Resolved]
  - Intentional product use issue [Recovered/Resolved]
